FAERS Safety Report 7124668 (Version 6)
Quarter: 2014Q1

REPORT INFORMATION
  Report Type: Report from Study
  Country: DE (occurrence: DE)
  Receive Date: 20090922
  Receipt Date: 20140117
  Transmission Date: 20141002
  Serious: Yes (Hospitalization)
  Sender: FDA-Public Use
  Company Number: DE-JNJFOC-20090903852

PATIENT
  Age: 46 Year
  Sex: Male
  Weight: 81 kg

DRUGS (5)
  1. REMICADE [Suspect]
     Indication: COLITIS ULCERATIVE
     Route: 042
     Dates: start: 20080108, end: 20080415
  2. PANTOZOL [Concomitant]
     Indication: GASTROINTESTINAL DISORDER THERAPY
     Route: 048
  3. SIMVAHEXAL [Concomitant]
     Indication: BLOOD CHOLESTEROL
     Route: 048
  4. TREVILOR [Concomitant]
     Indication: DEPRESSION
     Route: 048
  5. NOVALGIN [Concomitant]
     Indication: PAIN
     Route: 065

REACTIONS (2)
  - Ascites [Unknown]
  - Colitis ulcerative [Recovered/Resolved]
